FAERS Safety Report 4940458-2 (Version None)
Quarter: 2006Q1

REPORT INFORMATION
  Report Type: 
  Country: None (occurrence: None)
  Receive Date: 20060131
  Receipt Date: 20051219
  Transmission Date: 20060701
  Serious: No
  Sender: FDA-Public Use
  Company Number: 200520705US

PATIENT
  Sex: Female

DRUGS (1)
  1. KETEK [Suspect]
     Indication: SINUSITIS
     Dosage: PO
     Route: 048
     Dates: start: 20051217, end: 20051217

REACTIONS (3)
  - DIZZINESS [None]
  - PALPITATIONS [None]
  - VISION BLURRED [None]
